FAERS Safety Report 19818451 (Version 1)
Quarter: 2021Q3

REPORT INFORMATION
  Report Type: Spontaneous
  Country: CA (occurrence: CA)
  Receive Date: 20210911
  Receipt Date: 20210911
  Transmission Date: 20211014
  Serious: Yes (Hospitalization)
  Sender: FDA-Public Use
  Company Number: CA-TEVA-2021-CA-1951104

PATIENT
  Age: 52 Year
  Sex: Male
  Weight: 60 kg

DRUGS (10)
  1. CARBOPLATIN. [Suspect]
     Active Substance: CARBOPLATIN
     Indication: LUNG NEOPLASM MALIGNANT
     Route: 065
  2. DIPHENHYDRAMINE. [Concomitant]
     Active Substance: DIPHENHYDRAMINE
  3. RANITIDINE. [Concomitant]
     Active Substance: RANITIDINE
  4. LORAZEPAM. [Concomitant]
     Active Substance: LORAZEPAM
  5. KEYTRUDA [Suspect]
     Active Substance: PEMBROLIZUMAB
     Indication: LUNG NEOPLASM MALIGNANT
     Route: 065
  6. ONDANSETRON [Concomitant]
     Active Substance: ONDANSETRON
  7. DEXAMETHASONE. [Concomitant]
     Active Substance: DEXAMETHASONE
  8. PROCHLORPERAZINE. [Concomitant]
     Active Substance: PROCHLORPERAZINE
  9. PAMIDRONATE DISODIUM FOR INJECTION [Concomitant]
     Active Substance: PAMIDRONATE DISODIUM
  10. PACLITAXEL INJECTION [Suspect]
     Active Substance: PACLITAXEL
     Indication: LUNG NEOPLASM MALIGNANT
     Route: 065

REACTIONS (5)
  - Febrile neutropenia [Not Recovered/Not Resolved]
  - Lung squamous cell carcinoma metastatic [Not Recovered/Not Resolved]
  - Septic shock [Not Recovered/Not Resolved]
  - Oropharyngeal squamous cell carcinoma [Not Recovered/Not Resolved]
  - Abscess neck [Not Recovered/Not Resolved]
